FAERS Safety Report 9364760 (Version 1)
Quarter: 2013Q2

REPORT INFORMATION
  Report Type: Spontaneous
  Country: FR (occurrence: FR)
  Receive Date: 20130624
  Receipt Date: 20130624
  Transmission Date: 20140414
  Serious: Yes (Life-Threatening)
  Sender: FDA-Public Use
  Company Number: FR-MYLANLABS-2013S1013241

PATIENT
  Age: 24 Year
  Sex: Female

DRUGS (2)
  1. PECFENT [Suspect]
     Indication: SUICIDE ATTEMPT
     Dosage: THREE DOSES OF 400MICROG
     Route: 045
  2. MORPHINE [Suspect]
     Indication: SUICIDE ATTEMPT
     Route: 065

REACTIONS (10)
  - Coma [Recovered/Resolved]
  - Bradypnoea [Recovered/Resolved]
  - Apnoea [Recovered/Resolved]
  - Cyanosis [Recovered/Resolved]
  - Cyanosis [Recovered/Resolved]
  - Miosis [Recovered/Resolved]
  - Toxicity to various agents [Recovered/Resolved]
  - Suicide attempt [Recovered/Resolved]
  - Intentional drug misuse [Recovered/Resolved]
  - Intentional overdose [Recovered/Resolved]
